FAERS Safety Report 25029795 (Version 1)
Quarter: 2025Q1

REPORT INFORMATION
  Report Type: Spontaneous
  Country: LB (occurrence: LB)
  Receive Date: 20250303
  Receipt Date: 20250303
  Transmission Date: 20250408
  Serious: No
  Sender: ABBVIE
  Company Number: LB-ABBVIE-6157211

PATIENT

DRUGS (1)
  1. LILETTA [Suspect]
     Active Substance: LEVONORGESTREL
     Indication: Product used for unknown indication
     Route: 015

REACTIONS (1)
  - No adverse event [Unknown]
